FAERS Safety Report 7392473-X (Version None)
Quarter: 2011Q2

REPORT INFORMATION
  Report Type: 
  Country: None (occurrence: None)
  Receive Date: 20110404
  Receipt Date: 20110103
  Transmission Date: 20111010
  Serious: No
  Sender: FDA-Public Use
  Company Number: US-BAYER-2011-026696

PATIENT
  Sex: Female
  Weight: 59 kg

DRUGS (1)
  1. ALEVE (CAPLET) [Suspect]
     Indication: EAR PAIN
     Dosage: 660 MG, ONCE
     Route: 048
     Dates: start: 20101228

REACTIONS (3)
  - SWELLING FACE [None]
  - HYPOAESTHESIA ORAL [None]
  - LIP SWELLING [None]
